FAERS Safety Report 8901308 (Version 1)
Quarter: 2012Q4

REPORT INFORMATION
  Report Type: 
  Country: AR (occurrence: AR)
  Receive Date: 20121108
  Receipt Date: 20121108
  Transmission Date: 20130627
  Serious: Yes (Other)
  Sender: FDA-Public Use
  Company Number: AR-BAXTER-2012BAX020762

PATIENT
  Age: 36 Year
  Sex: Male

DRUGS (1)
  1. HEMOFIL M [Suspect]
     Indication: HEMOPHILIA A
     Route: 065

REACTIONS (1)
  - Hepatitis C [Unknown]
